FAERS Safety Report 25640575 (Version 3)
Quarter: 2025Q3

REPORT INFORMATION
  Report Type: Spontaneous
  Country: US (occurrence: US)
  Receive Date: 20250804
  Receipt Date: 20250918
  Transmission Date: 20251021
  Serious: Yes (Hospitalization)
  Sender: ANI
  Company Number: US-ANIPHARMA-2025-US-035751

PATIENT
  Age: 68 Year
  Sex: Female

DRUGS (1)
  1. CORTICOTROPIN [Suspect]
     Active Substance: CORTICOTROPIN
     Indication: Chronic inflammatory demyelinating polyradiculoneuropathy
     Route: 058
     Dates: start: 20241008, end: 20250625

REACTIONS (8)
  - Colostomy bag user [Unknown]
  - Malaise [Unknown]
  - Product dose omission issue [Unknown]
  - Product administration interrupted [Recovered/Resolved]
  - Product use in unapproved indication [Recovered/Resolved]
  - Diverticulitis [Unknown]
  - Pulmonary embolism [Unknown]
  - Surgery [Unknown]

NARRATIVE: CASE EVENT DATE: 20250625
